FAERS Safety Report 8330803-2 (Version None)
Quarter: 2012Q2

REPORT INFORMATION
  Report Type: 
  Country: None (occurrence: None)
  Receive Date: 20120502
  Receipt Date: 20120411
  Transmission Date: 20120825
  Serious: No
  Sender: FDA-Public Use
  Company Number: US-AMGEN-USASP2012022978

PATIENT
  Age: 87 Year
  Sex: Female

DRUGS (1)
  1. ENBREL [Suspect]
     Indication: ANKYLOSING SPONDYLITIS
     Dosage: 50 MG, QWK
     Dates: start: 19990101

REACTIONS (7)
  - BONE PAIN [None]
  - PAIN IN EXTREMITY [None]
  - ARTHRITIS [None]
  - HYPOAESTHESIA [None]
  - SCIATICA [None]
  - FOOT DEFORMITY [None]
  - BUNION [None]
